FAERS Safety Report 13252773 (Version 1)
Quarter: 2017Q1

REPORT INFORMATION
  Report Type: Spontaneous
  Country: US (occurrence: US)
  Receive Date: 20170220
  Receipt Date: 20170220
  Transmission Date: 20170428
  Serious: Yes (Hospitalization, Other)
  Sender: FDA-Public Use
  Company Number: US-009507513-1702USA007852

PATIENT
  Age: 26 Year
  Sex: Female

DRUGS (1)
  1. NUVARING [Suspect]
     Active Substance: ETHINYL ESTRADIOL\ETONOGESTREL
     Indication: CONTRACEPTION
     Dosage: 1 DF, UNKNOWN
     Route: 067
     Dates: start: 2012, end: 20150223

REACTIONS (3)
  - Swelling [Unknown]
  - Pulmonary embolism [Unknown]
  - Intracranial venous sinus thrombosis [Unknown]

NARRATIVE: CASE EVENT DATE: 20150223
